FAERS Safety Report 15396691 (Version 2)
Quarter: 2018Q4

REPORT INFORMATION
  Report Type: Spontaneous
  Country: GR (occurrence: GR)
  Receive Date: 20180918
  Receipt Date: 20181012
  Transmission Date: 20190204
  Serious: Yes (Other)
  Sender: FDA-Public Use
  Company Number: GR-PFIZER INC-2018372050

PATIENT
  Age: 36 Year

DRUGS (1)
  1. LINEZOLID. [Suspect]
     Active Substance: LINEZOLID
     Indication: ENTEROCOCCAL BACTERAEMIA
     Dosage: UNK

REACTIONS (5)
  - Hypotension [Unknown]
  - Lactic acidosis [Unknown]
  - Altered state of consciousness [Unknown]
  - Abdominal pain [Unknown]
  - Nausea [Unknown]
